FAERS Safety Report 6087032-5 (Version None)
Quarter: 2009Q1

REPORT INFORMATION
  Report Type: 
  Country: None (occurrence: None)
  Receive Date: 20090223
  Receipt Date: 20090211
  Transmission Date: 20090719
  Serious: Yes (Hospitalization)
  Sender: FDA-Public Use
  Company Number: PHHY2009DE05086

PATIENT
  Sex: Female

DRUGS (3)
  1. ZOMETA [Suspect]
     Indication: METASTASES TO BONE
     Dosage: 4 MG EVERY 4 WEEKS
     Route: 042
     Dates: start: 20020101, end: 20080901
  2. TAXOL [Concomitant]
     Indication: BREAST CANCER
     Dosage: UNK
     Route: 042
     Dates: start: 20060101
  3. EPIRUBICIN [Concomitant]
     Indication: BREAST CANCER
     Dosage: UNK
     Route: 042
     Dates: start: 20080101, end: 20080901

REACTIONS (7)
  - DEBRIDEMENT [None]
  - GENERAL ANAESTHESIA [None]
  - INFLAMMATION [None]
  - ORAL SURGERY [None]
  - OSTEONECROSIS [None]
  - PLASTIC SURGERY [None]
  - TOOTH EXTRACTION [None]
